FAERS Safety Report 19398612 (Version 3)
Quarter: 2021Q2

REPORT INFORMATION
  Report Type: Report from Study
  Country: US (occurrence: US)
  Receive Date: 20210610
  Receipt Date: 20210630
  Transmission Date: 20210717
  Serious: Yes (Other)
  Sender: FDA-Public Use
  Company Number: US-GLAXOSMITHKLINE-US2021119982

PATIENT
  Sex: Female

DRUGS (3)
  1. NIRAPARIB [Suspect]
     Active Substance: NIRAPARIB
     Indication: OVARIAN CANCER
     Dosage: 300 MG, QD
     Route: 048
     Dates: start: 20210506
  2. NIRAPARIB [Suspect]
     Active Substance: NIRAPARIB
     Dosage: 300 MG, QD
     Route: 048
     Dates: start: 20210618
  3. NIRAPARIB [Suspect]
     Active Substance: NIRAPARIB
     Dosage: 300 MG, QD
     Route: 048
     Dates: end: 20210604

REACTIONS (15)
  - Oral pain [Unknown]
  - Haemorrhoidal haemorrhage [Not Recovered/Not Resolved]
  - Decreased activity [Unknown]
  - Product dose omission issue [Unknown]
  - Nausea [Not Recovered/Not Resolved]
  - Taste disorder [Unknown]
  - Laboratory test abnormal [Not Recovered/Not Resolved]
  - Insomnia [Not Recovered/Not Resolved]
  - Weight decreased [Unknown]
  - Urine output decreased [Unknown]
  - Stomatitis [Recovered/Resolved]
  - Irritability [Unknown]
  - Haematochezia [Unknown]
  - Abdominal pain upper [Not Recovered/Not Resolved]
  - Platelet count decreased [Not Recovered/Not Resolved]
